FAERS Safety Report 11399300 (Version 1)
Quarter: 2015Q3

REPORT INFORMATION
  Report Type: Spontaneous
  Country: US (occurrence: None)
  Receive Date: 20150819
  Receipt Date: 20150819
  Transmission Date: 20151125
  Serious: Yes (Other)
  Sender: FDA-Public Use
  Company Number: None

PATIENT
  Age: 51 Year
  Sex: Female
  Weight: 45.36 kg

DRUGS (2)
  1. METHYLB12/5-MTHF/NAC/VITD3 1/7/5/400MG/2500IU [Suspect]
     Active Substance: ACETYLCYSTEINE\CHOLECALCIFEROL\LEVOMEFOLIC ACID\METHYLCOBALAMIN
     Indication: METHYLENETETRAHYDROFOLATE REDUCTASE GENE MUTATION
     Route: 048
     Dates: start: 20150725, end: 20150725
  2. ORGANIC FOOD BASED MULTI VITAMIN/MINERAL/OMEGA SUPPLEMENT [Concomitant]

REACTIONS (3)
  - Insomnia [None]
  - Cognitive disorder [None]
  - Weight decreased [None]

NARRATIVE: CASE EVENT DATE: 20150725
